FAERS Safety Report 15621775 (Version 2)
Quarter: 2018Q4

REPORT INFORMATION
  Report Type: Spontaneous
  Country: US (occurrence: US)
  Receive Date: 20181115
  Receipt Date: 20181123
  Transmission Date: 20190205
  Serious: No
  Sender: FDA-Public Use
  Company Number: US-HORIZON-PEN-1225-2018

PATIENT
  Age: 72 Year
  Sex: Female

DRUGS (9)
  1. SIMVASTATIN. [Concomitant]
     Active Substance: SIMVASTATIN
  2. CALCIUM [Concomitant]
     Active Substance: CALCIUM
  3. ATENOLOL. [Concomitant]
     Active Substance: ATENOLOL
  4. FOLIC ACID. [Concomitant]
     Active Substance: FOLIC ACID
  5. PANTOPRAZOLE [Concomitant]
     Active Substance: PANTOPRAZOLE
  6. LOSARTAN. [Concomitant]
     Active Substance: LOSARTAN
  7. MAGNESIUM [Concomitant]
     Active Substance: MAGNESIUM
  8. ASPIRIN. [Concomitant]
     Active Substance: ASPIRIN
  9. PENNSAID [Suspect]
     Active Substance: DICLOFENAC SODIUM
     Indication: NEURALGIA
     Dosage: 2 TIMES A DAY
     Dates: start: 20181105, end: 20181106

REACTIONS (4)
  - Inability to afford medication [Unknown]
  - Off label use [Unknown]
  - Hypersensitivity [Recovered/Resolved]
  - Pain [Recovered/Resolved]

NARRATIVE: CASE EVENT DATE: 20181106
